FAERS Safety Report 6517056-2 (Version None)
Quarter: 2009Q4

REPORT INFORMATION
  Report Type: 
  Country: None (occurrence: None)
  Receive Date: 20091223
  Receipt Date: 20091218
  Transmission Date: 20100525
  Serious: Yes (Other)
  Sender: FDA-Public Use
  Company Number: DE-JNJCH-2009032091

PATIENT
  Sex: Female
  Weight: 61 kg

DRUGS (1)
  1. REGAINE 2% [Suspect]
     Indication: DRUG USE FOR UNKNOWN INDICATION
     Dosage: TEXT:UNSPECIFIED TWICE DAILY
     Route: 061
     Dates: start: 20091130, end: 20091210

REACTIONS (6)
  - ASTHMA [None]
  - BLOOD PRESSURE DECREASED [None]
  - CARDIOVASCULAR DISORDER [None]
  - CHEST PAIN [None]
  - EAR PAIN [None]
  - PERIPHERAL COLDNESS [None]
